FAERS Safety Report 20308243 (Version 17)
Quarter: 2025Q1

REPORT INFORMATION
  Report Type: Spontaneous
  Country: IN (occurrence: IN)
  Receive Date: 20220107
  Receipt Date: 20250212
  Transmission Date: 20250409
  Serious: Yes (Other)
  Sender: PFIZER
  Company Number: IN-PFIZER INC-202101857241

PATIENT
  Age: 65 Year
  Sex: Female

DRUGS (34)
  1. PALBOCICLIB [Suspect]
     Active Substance: PALBOCICLIB
     Indication: Breast cancer metastatic
     Dates: start: 202103
  2. PALBOCICLIB [Suspect]
     Active Substance: PALBOCICLIB
     Route: 048
     Dates: start: 20210406
  3. PALBOCICLIB [Suspect]
     Active Substance: PALBOCICLIB
     Route: 048
     Dates: start: 20210511
  4. PALBOCICLIB [Suspect]
     Active Substance: PALBOCICLIB
     Route: 048
     Dates: start: 20210608
  5. PALBOCICLIB [Suspect]
     Active Substance: PALBOCICLIB
     Route: 048
     Dates: start: 20210707
  6. PALBOCICLIB [Suspect]
     Active Substance: PALBOCICLIB
     Route: 048
     Dates: start: 20210804
  7. PALBOCICLIB [Suspect]
     Active Substance: PALBOCICLIB
     Route: 048
     Dates: start: 20210831
  8. PALBOCICLIB [Suspect]
     Active Substance: PALBOCICLIB
     Route: 048
     Dates: start: 20210930
  9. PALBOCICLIB [Suspect]
     Active Substance: PALBOCICLIB
     Route: 048
     Dates: start: 20211028
  10. PALBOCICLIB [Suspect]
     Active Substance: PALBOCICLIB
     Route: 048
     Dates: start: 20211125
  11. PALBOCICLIB [Suspect]
     Active Substance: PALBOCICLIB
     Route: 048
     Dates: start: 20211223
  12. PALBOCICLIB [Suspect]
     Active Substance: PALBOCICLIB
     Route: 048
     Dates: start: 20220120
  13. PALBOCICLIB [Suspect]
     Active Substance: PALBOCICLIB
     Route: 048
     Dates: start: 20220217, end: 202203
  14. PALBOCICLIB [Suspect]
     Active Substance: PALBOCICLIB
     Route: 048
     Dates: start: 20220321
  15. PALBOCICLIB [Suspect]
     Active Substance: PALBOCICLIB
     Route: 048
  16. LETROZOLE [Concomitant]
     Active Substance: LETROZOLE
     Indication: Breast cancer metastatic
     Dates: start: 202103
  17. LETROZOLE [Concomitant]
     Active Substance: LETROZOLE
     Dates: start: 20210406
  18. LETROZOLE [Concomitant]
     Active Substance: LETROZOLE
     Dates: start: 20210511
  19. LETROZOLE [Concomitant]
     Active Substance: LETROZOLE
     Dates: start: 20210608
  20. LETROZOLE [Concomitant]
     Active Substance: LETROZOLE
     Dates: start: 20210707
  21. LETROZOLE [Concomitant]
     Active Substance: LETROZOLE
     Dates: start: 20210804
  22. LETROZOLE [Concomitant]
     Active Substance: LETROZOLE
     Dates: start: 20210831
  23. LETROZOLE [Concomitant]
     Active Substance: LETROZOLE
     Dates: start: 20210930
  24. LETROZOLE [Concomitant]
     Active Substance: LETROZOLE
     Dates: start: 20211028
  25. LETROZOLE [Concomitant]
     Active Substance: LETROZOLE
     Dates: start: 20211125
  26. LETROZOLE [Concomitant]
     Active Substance: LETROZOLE
     Dates: start: 20211223
  27. LETROZOLE [Concomitant]
     Active Substance: LETROZOLE
     Dates: start: 20220120
  28. LETROZOLE [Concomitant]
     Active Substance: LETROZOLE
     Dates: start: 20220217
  29. LETROZOLE [Concomitant]
     Active Substance: LETROZOLE
     Dates: start: 20220321
  30. ZOLEDRONIC ACID [Concomitant]
     Active Substance: ZOLEDRONIC ACID
     Indication: Breast cancer metastatic
     Dates: start: 20210409
  31. ZOLEDRONIC ACID [Concomitant]
     Active Substance: ZOLEDRONIC ACID
     Dates: start: 202208
  32. ZOLEDRONIC ACID [Concomitant]
     Active Substance: ZOLEDRONIC ACID
     Dates: start: 20240719
  33. CALCIUM\VITAMIN D [Concomitant]
     Active Substance: CALCIUM\VITAMIN D
  34. FASLODEX [Concomitant]
     Active Substance: FULVESTRANT
     Dates: start: 20240719

REACTIONS (22)
  - SARS-CoV-2 test positive [Unknown]
  - Electrocardiogram QT shortened [Unknown]
  - Body mass index increased [Unknown]
  - Carpal tunnel syndrome [Unknown]
  - Haemoglobin decreased [Unknown]
  - Mean cell volume increased [Unknown]
  - White blood cell count decreased [Unknown]
  - Neoplasm progression [Unknown]
  - Vitamin D abnormal [Unknown]
  - Induration [Unknown]
  - Body surface area increased [Unknown]
  - Blood pressure diastolic decreased [Unknown]
  - Muscle spasms [Not Recovered/Not Resolved]
  - Respiratory rate increased [Unknown]
  - Arthralgia [Recovering/Resolving]
  - Pain in extremity [Recovering/Resolving]
  - Tendonitis [Not Recovered/Not Resolved]
  - Peripheral swelling [Unknown]
  - Oedema peripheral [Unknown]
  - Blood creatinine increased [Unknown]
  - Blood pressure systolic increased [Unknown]
  - Blood cholesterol increased [Unknown]

NARRATIVE: CASE EVENT DATE: 20220301
